FAERS Safety Report 4512360-1 (Version None)
Quarter: 2004Q4

REPORT INFORMATION
  Report Type: 
  Country: None (occurrence: None)
  Receive Date: 20041123
  Receipt Date: 20041111
  Transmission Date: 20050328
  Serious: Yes (Hospitalization)
  Sender: FDA-Public Use
  Company Number: 062-20785-04090667

PATIENT
  Age: 78 Year
  Sex: Male

DRUGS (12)
  1. THALIDOMIDE - PHARMION (THALIDOMIDE) (50 MILLIGRAM, CAPSULES) [Suspect]
     Indication: PLASMACYTOMA
     Dosage: SEE IMAGE
     Route: 048
     Dates: start: 20040910, end: 20040101
  2. THALIDOMIDE - PHARMION (THALIDOMIDE) (50 MILLIGRAM, CAPSULES) [Suspect]
     Indication: PLASMACYTOMA
     Dosage: SEE IMAGE
     Route: 048
     Dates: start: 20040715, end: 20040909
  3. THALIDOMIDE - PHARMION (THALIDOMIDE) (50 MILLIGRAM, CAPSULES) [Suspect]
     Indication: PLASMACYTOMA
     Dosage: SEE IMAGE
     Route: 048
     Dates: start: 20040101
  4. PREDNISONE TAB [Concomitant]
  5. BENALAPRIL (ENALAPRIL) [Concomitant]
  6. NEXIUM [Concomitant]
  7. RISPERDAL [Concomitant]
  8. REMERGIL (MITRAZAPINE) [Concomitant]
  9. FUROSEMIDE [Concomitant]
  10. DURAGESIC [Concomitant]
  11. NAC 600(ACETYLCYSTEINE) [Concomitant]
  12. ENOXAPARIN SODIUM [Concomitant]

REACTIONS (4)
  - ANAEMIA [None]
  - FEMORAL NECK FRACTURE [None]
  - OSTEOLYSIS [None]
  - PATHOLOGICAL FRACTURE [None]
